FAERS Safety Report 18089016 (Version 3)
Quarter: 2020Q4

REPORT INFORMATION
  Report Type: Spontaneous
  Country: JP (occurrence: JP)
  Receive Date: 20200730
  Receipt Date: 20201006
  Transmission Date: 20210113
  Serious: Yes (Death, Other)
  Sender: FDA-Public Use
  Company Number: JP-ROCHE-2650722

PATIENT
  Age: 86 Year
  Sex: Female
  Weight: 38 kg

DRUGS (5)
  1. ACTEMRA [Suspect]
     Active Substance: TOCILIZUMAB
     Indication: RHEUMATOID ARTHRITIS
     Route: 058
     Dates: end: 20200609
  2. REBAMIPIDE [Concomitant]
     Active Substance: REBAMIPIDE
     Route: 048
     Dates: end: 20200717
  3. ONEALFA [Concomitant]
     Active Substance: ALFACALCIDOL
  4. BETANIS [Concomitant]
     Active Substance: MIRABEGRON
  5. CALONAL [Concomitant]
     Active Substance: ACETAMINOPHEN

REACTIONS (5)
  - Cardiac failure [Unknown]
  - Pancytopenia [Fatal]
  - Bradycardia [Unknown]
  - Pneumonia [Fatal]
  - Medical device implantation [Unknown]

NARRATIVE: CASE EVENT DATE: 20200702
